FAERS Safety Report 8086117-1 (Version None)
Quarter: 2012Q1

REPORT INFORMATION
  Report Type: 
  Country: None (occurrence: None)
  Receive Date: 20120128
  Receipt Date: 20110525
  Transmission Date: 20120608
  Serious: No
  Sender: FDA-Public Use
  Company Number: US-ABBOTT-11P-163-0719012-00

PATIENT
  Sex: Female

DRUGS (8)
  1. LEVOSTINE [Concomitant]
     Indication: BLOOD CHOLESTEROL INCREASED
  2. IMITREX [Concomitant]
     Indication: MIGRAINE
  3. HYDROCODONE BITARTRATE [Concomitant]
     Indication: PAIN
     Dosage: 10/325MG 2-3 TABLETS DAILY
  4. HUMIRA [Suspect]
     Indication: CROHN'S DISEASE
     Dates: start: 20110317
  5. LEVOTHYROXINE SODIUM [Concomitant]
     Indication: HYPOTHYROIDISM
  6. TOPAMAX [Concomitant]
     Indication: MIGRAINE
  7. TOPAMAX [Concomitant]
     Indication: CONVULSION
  8. SODIUM BICARBONATE [Concomitant]
     Indication: GASTRIC PH DECREASED

REACTIONS (6)
  - FATIGUE [None]
  - PAIN IN EXTREMITY [None]
  - POLLAKIURIA [None]
  - MICTURITION URGENCY [None]
  - MUSCLE FATIGUE [None]
  - INFLUENZA LIKE ILLNESS [None]
